APPROVED DRUG PRODUCT: THEOVENT
Active Ingredient: THEOPHYLLINE
Strength: 250MG
Dosage Form/Route: CAPSULE, EXTENDED RELEASE;ORAL
Application: A087910 | Product #001
Applicant: SCHERING CORP SUB SCHERING PLOUGH CORP
Approved: Jan 31, 1985 | RLD: No | RS: No | Type: DISCN